FAERS Safety Report 17087092 (Version 1)
Quarter: 2019Q4

REPORT INFORMATION
  Report Type: Spontaneous
  Country: JP (occurrence: JP)
  Receive Date: 20191128
  Receipt Date: 20191128
  Transmission Date: 20200122
  Serious: Yes (Other)
  Sender: FDA-Public Use
  Company Number: JP-IPSEN BIOPHARMACEUTICALS, INC.-2013-2267

PATIENT
  Age: 6 Month
  Sex: Female

DRUGS (2)
  1. INCRELEX [Suspect]
     Active Substance: MECASERMIN
     Indication: AUTOSOMAL CHROMOSOME ANOMALY
     Dosage: NOT REPORTED
     Route: 058
     Dates: start: 1988, end: 1999
  2. INCRELEX [Suspect]
     Active Substance: MECASERMIN
     Indication: OFF LABEL USE
     Route: 058
     Dates: start: 1999, end: 2006

REACTIONS (8)
  - Adenoma benign [Not Recovered/Not Resolved]
  - Mastitis [Recovered/Resolved]
  - Tonsillar disorder [Unknown]
  - Endometrial adenocarcinoma [Not Recovered/Not Resolved]
  - Polycystic ovaries [Not Recovered/Not Resolved]
  - Goitre [Unknown]
  - Drug ineffective for unapproved indication [Unknown]
  - Off label use [Unknown]

NARRATIVE: CASE EVENT DATE: 1988
